FAERS Safety Report 8642013 (Version 3)
Quarter: 2012Q4

REPORT INFORMATION
  Report Type: 
  Country: US (occurrence: US)
  Receive Date: 20120628
  Receipt Date: 20120831
  Transmission Date: 20130627
  Serious: Yes (Other)
  Sender: FDA-Public Use
  Company Number: US-PFIZER INC-2012151091

PATIENT
  Age: 64 Year
  Sex: Female
  Weight: 136 kg

DRUGS (10)
  1. CELEBREX [Suspect]
     Indication: ARTHRITIS
     Dosage: 200 mg, 1, 1x/day
     Route: 048
  2. VISTARIL [Suspect]
     Indication: ANXIETY
     Dosage: 25 mg daily or BID as needed
     Route: 048
  3. ACCURETIC [Suspect]
     Indication: BLOOD PRESSURE ABNORMAL
     Dosage: 20/25, mg, daily
  4. ACCURETIC [Suspect]
     Indication: DIURETIC THERAPY
  5. DETROL LA [Suspect]
     Indication: MICTURITION DISORDER
     Dosage: 4 mg, 1, 1xday
     Route: 048
  6. CRESTOR [Concomitant]
     Indication: BLOOD CHOLESTEROL ABNORMAL
     Dosage: 10 mg, daily
  7. CYMBALTA [Concomitant]
     Indication: BIPOLAR DISORDER
     Dosage: 30 mg, 3x/day
  8. SEROQUEL [Concomitant]
     Indication: BIPOLAR DISORDER
     Dosage: 50 mg, daily
  9. LAMICTAL [Concomitant]
     Indication: BIPOLAR DISORDER
     Dosage: 200 mg, daily
  10. SINGULAIR [Concomitant]
     Indication: ASTHMA
     Dosage: 10 mg, daily

REACTIONS (1)
  - Diabetes mellitus [Unknown]
